FAERS Safety Report 9061736 (Version 1)
Quarter: 2013Q1

REPORT INFORMATION
  Report Type: Spontaneous
  Country: US (occurrence: None)
  Receive Date: 20130122
  Receipt Date: 20130122
  Transmission Date: 20140127
  Serious: Yes (Hospitalization)
  Sender: FDA-Public Use
  Company Number: UTC-028048

PATIENT
  Age: 49 Year
  Sex: 0

DRUGS (3)
  1. REMODULIN (INJECTION FOR INFUSION) (TREPROSTINIL SODIUM) [Suspect]
     Indication: PRODUCT USED FOR UNKNOWN INDICATION
     Dosage: 518.4MUG/KG, 1 IN 1 MIN),  INTRAVENOUS DRIP
     Route: 041
     Dates: start: 20070101
  2. TRACLEER (BOSENTAN) (UNKNOWN) [Concomitant]
  3. COUMADIN (WARFARIN SODIUM) [Concomitant]

REACTIONS (2)
  - Pneumonia [None]
  - Device related sepsis [None]
